FAERS Safety Report 8548110-1 (Version None)
Quarter: 2012Q3

REPORT INFORMATION
  Report Type: 
  Country: None (occurrence: None)
  Receive Date: 20120730
  Receipt Date: 20120723
  Transmission Date: 20120928
  Serious: No
  Sender: FDA-Public Use
  Company Number: US-009507513-1207USA009789

PATIENT

DRUGS (4)
  1. LYRICA [Suspect]
     Dosage: 50 MG, QD
  2. METOPROLOL TARTRATE [Interacting]
     Dosage: 50 MG, QD
     Route: 048
  3. LISINOPRIL [Interacting]
     Dosage: 10 MG, QD
     Route: 048
  4. ZOCOR [Interacting]
     Dosage: 80 MG, QD
     Route: 048

REACTIONS (5)
  - INFLUENZA LIKE ILLNESS [None]
  - NAUSEA [None]
  - UPPER RESPIRATORY TRACT CONGESTION [None]
  - DRUG INTERACTION [None]
  - FATIGUE [None]
